FAERS Safety Report 21230236 (Version 1)
Quarter: 2022Q3

REPORT INFORMATION
  Report Type: Spontaneous
  Country: IN (occurrence: IN)
  Receive Date: 20220818
  Receipt Date: 20220818
  Transmission Date: 20221027
  Serious: Yes (Other)
  Sender: FDA-Public Use
  Company Number: IN-GILEAD-2022-0593992

PATIENT
  Age: 32 Year
  Sex: Male

DRUGS (4)
  1. TENOFOVIR ALAFENAMIDE [Suspect]
     Active Substance: TENOFOVIR ALAFENAMIDE
     Indication: Product used for unknown indication
     Dosage: UNK
     Route: 065
  2. TENOFOVIR DISOPROXIL FUMARATE [Suspect]
     Active Substance: TENOFOVIR DISOPROXIL FUMARATE
     Indication: HIV infection
     Dosage: UNK
     Route: 065
  3. LAMIVUDINE [Concomitant]
     Active Substance: LAMIVUDINE
     Dosage: UNK
  4. EFAVIRENZ [Concomitant]
     Active Substance: EFAVIRENZ
     Dosage: UNK

REACTIONS (3)
  - Secondary syphilis [Unknown]
  - Immune reconstitution inflammatory syndrome [Unknown]
  - Drug eruption [Unknown]
